FAERS Safety Report 9342840 (Version 2)
Quarter: 2013Q2

REPORT INFORMATION
  Report Type: Spontaneous
  Country: ES (occurrence: ES)
  Receive Date: 20130611
  Receipt Date: 20130614
  Transmission Date: 20140414
  Serious: Yes (Life-Threatening)
  Sender: FDA-Public Use
  Company Number: ES-JNJFOC-20130604815

PATIENT
  Age: 53 Year
  Sex: Female

DRUGS (1)
  1. PALEXIA RETARD [Suspect]
     Indication: BACK PAIN
     Route: 048
     Dates: start: 20121019, end: 20121024

REACTIONS (2)
  - Respiratory failure [Recovered/Resolved]
  - Laryngeal oedema [Recovered/Resolved]
